FAERS Safety Report 5813972-5 (Version None)
Quarter: 2008Q3

REPORT INFORMATION
  Report Type: 
  Country: None (occurrence: None)
  Receive Date: 20080717
  Receipt Date: 20080520
  Transmission Date: 20090109
  Serious: Yes (Other)
  Sender: FDA-Public Use
  Company Number: HQWYE236801SEP06

PATIENT
  Sex: Male
  Weight: 83.7 kg

DRUGS (7)
  1. PANTOPRAZOLE SODIUM [Suspect]
     Indication: OESOPHAGITIS
     Route: 048
     Dates: start: 20020219, end: 20070218
  2. GELACET [Concomitant]
     Indication: NAIL GROWTH ABNORMAL
     Dosage: ^9 DOSAGE FORMS^
     Route: 048
     Dates: start: 20010103
  3. ACETYLSALICYLIC ACID SRT [Concomitant]
     Indication: PROPHYLAXIS
     Route: 048
     Dates: start: 20040101, end: 20050316
  4. ACETYLSALICYLIC ACID SRT [Concomitant]
     Indication: THROMBOSIS PROPHYLAXIS
     Route: 048
     Dates: start: 20050701
  5. ALLOPURINOL [Concomitant]
     Indication: GOUT
     Route: 048
     Dates: start: 19920101, end: 20031103
  6. ALLOPURINOL [Concomitant]
     Route: 048
     Dates: start: 20031104
  7. BISOPROLOL FUMARATE [Concomitant]
     Indication: HYPERTENSION
     Route: 048
     Dates: start: 20010101

REACTIONS (1)
  - NON-HODGKIN'S LYMPHOMA [None]
